FAERS Safety Report 8835733 (Version 1)
Quarter: 2012Q4

REPORT INFORMATION
  Report Type: 
  Country: CA (occurrence: CA)
  Receive Date: 20121011
  Receipt Date: 20121011
  Transmission Date: 20130627
  Serious: Yes (Other)
  Sender: FDA-Public Use
  Company Number: CA-ASTRAZENECA-2012SE57925

PATIENT
  Age: 75 Year
  Sex: Male

DRUGS (1)
  1. ZOLADEX [Suspect]
     Indication: PROSTATE CANCER
     Route: 058
     Dates: start: 20091013

REACTIONS (4)
  - Decreased appetite [Recovering/Resolving]
  - Oral pain [Recovering/Resolving]
  - Lymphadenopathy [Recovering/Resolving]
  - Asthenia [Recovering/Resolving]
